FAERS Safety Report 7704687-7 (Version None)
Quarter: 2011Q3

REPORT INFORMATION
  Report Type: 
  Country: None (occurrence: None)
  Receive Date: 20110823
  Receipt Date: 20110624
  Transmission Date: 20111222
  Serious: Yes (Hospitalization)
  Sender: FDA-Public Use
  Company Number: US-ASTRAZENECA-2011SE38475

PATIENT
  Age: 58 Year
  Sex: Male

DRUGS (10)
  1. SOMA [Concomitant]
     Dosage: 350MG, QID, PRN
  2. VALIUM [Concomitant]
     Dosage: 5 MG, TID, PRN
  3. XOPENEX [Concomitant]
     Dosage: PRN
  4. CELEXA [Concomitant]
  5. VYTORIN [Concomitant]
  6. ADVAIR HFA [Concomitant]
     Dosage: 2 PUFFS DAILY
  7. IMITREX [Concomitant]
     Indication: MIGRAINE
     Dosage: 100 MG PRN
     Route: 048
  8. ZESTRIL [Suspect]
     Route: 048
  9. VICODIN [Concomitant]
     Dosage: 7.5 MG, Q4H, PRN
  10. ALBUTEROL SULFATE AUTOHALER [Concomitant]
     Dosage: PRN

REACTIONS (7)
  - CONFUSIONAL STATE [None]
  - PETIT MAL EPILEPSY [None]
  - MENTAL DISORDER [None]
  - AMNESIA [None]
  - SYNCOPE [None]
  - MIGRAINE [None]
  - CONVULSION [None]
